FAERS Safety Report 15900924 (Version 3)
Quarter: 2025Q4

REPORT INFORMATION
  Report Type: Spontaneous
  Country: US (occurrence: US)
  Receive Date: 20190201
  Receipt Date: 20251118
  Transmission Date: 20260117
  Serious: Yes (Hospitalization)
  Sender: VERTEX
  Company Number: US-VERTEX PHARMACEUTICALS-2019-000780

PATIENT
  Age: 43 Year
  Sex: Female

DRUGS (22)
  1. SYMDEKO [Suspect]
     Active Substance: IVACAFTOR\TEZACAFTOR
     Indication: Cystic fibrosis
     Dosage: 01 TABLET OF 100MG TEZACAFTOR/150MG IVACAFTOR QAM AND 150MG IVACAFTOR QPM
     Route: 048
     Dates: start: 20180912, end: 20190131
  2. COMBIVENT [Concomitant]
     Active Substance: ALBUTEROL SULFATE\IPRATROPIUM BROMIDE
  3. AZITHROMYCIN [Concomitant]
     Active Substance: AZITHROMYCIN
  4. PANTOPRAZOLE [Concomitant]
     Active Substance: PANTOPRAZOLE
  5. ESCITALOPRAM [Concomitant]
     Active Substance: ESCITALOPRAM OXALATE
  6. MOMETASONE [Concomitant]
     Active Substance: MOMETASONE
  7. VANICREAM [Concomitant]
     Active Substance: TITANIUM DIOXIDE\ZINC OXIDE
  8. RIMANTADINE [Concomitant]
     Active Substance: RIMANTADINE HYDROCHLORIDE
  9. GABAPENTIN [Concomitant]
     Active Substance: GABAPENTIN
  10. METHOCARBAMOL [Concomitant]
     Active Substance: METHOCARBAMOL
  11. NYSTATIN [Concomitant]
     Active Substance: NYSTATIN
  12. FLUCONAZOLE [Concomitant]
     Active Substance: FLUCONAZOLE
  13. LEVOFLOXACIN [Concomitant]
     Active Substance: LEVOFLOXACIN
  14. TRIAMTERENE AND HYDROCHLOROTHIAZIDE [Concomitant]
     Active Substance: HYDROCHLOROTHIAZIDE\TRIAMTERENE
  15. COLISTIMETHATE [Concomitant]
     Active Substance: COLISTIMETHATE SODIUM
  16. SODIUM CHLORIDE [Concomitant]
     Active Substance: SODIUM CHLORIDE
  17. CAYSTON [Concomitant]
     Active Substance: AZTREONAM
  18. TRAMADOL HCL [Concomitant]
     Active Substance: TRAMADOL HYDROCHLORIDE
  19. CIPROFLOXACIN [Concomitant]
     Active Substance: CIPROFLOXACIN
  20. VITAMIN D3 [Concomitant]
     Active Substance: CHOLECALCIFEROL
  21. DOXYCYCLINE HYDROCHLORIDE [Concomitant]
     Active Substance: DOXYCYCLINE HYDROCHLORIDE
  22. MELATONIN [Concomitant]
     Active Substance: MELATONIN

REACTIONS (2)
  - Infective pulmonary exacerbation of cystic fibrosis [Recovering/Resolving]
  - Respiratory failure [Recovering/Resolving]

NARRATIVE: CASE EVENT DATE: 20190114
